FAERS Safety Report 7733871-1 (Version None)
Quarter: 2011Q3

REPORT INFORMATION
  Report Type: 
  Country: None (occurrence: None)
  Receive Date: 20110901
  Receipt Date: 20110817
  Transmission Date: 20111222
  Serious: Yes (Disabling, Other)
  Sender: FDA-Public Use
  Company Number: AUR-APL-2011-01487

PATIENT
  Age: 72 Year
  Sex: Female

DRUGS (2)
  1. MIRTAZAPINE [Suspect]
     Indication: DEPRESSED MOOD
     Dosage: (45 MG),ORAL
     Route: 048
     Dates: start: 20090601, end: 20100701
  2. OLANZAPINE [Concomitant]

REACTIONS (1)
  - COMPULSIVE SEXUAL BEHAVIOUR [None]
